FAERS Safety Report 10264572 (Version 1)
Quarter: 2014Q2

REPORT INFORMATION
  Report Type: Spontaneous
  Country: US (occurrence: None)
  Receive Date: 20140624
  Receipt Date: 20140624
  Transmission Date: 20141212
  Serious: Yes (Other)
  Sender: FDA-Public Use
  Company Number: 3011632-2014-00001

PATIENT
  Sex: 0

DRUGS (1)
  1. SODIUM FLUORIDE [Suspect]
     Indication: DENTAL CARIES
     Dosage: 15 TO 30 ML RINSE
     Dates: start: 20140501, end: 20140508

REACTIONS (1)
  - Malaise [None]
